FAERS Safety Report 6192541-4 (Version None)
Quarter: 2009Q2

REPORT INFORMATION
  Report Type: 
  Country: None (occurrence: None)
  Receive Date: 20090518
  Receipt Date: 20090506
  Transmission Date: 20091009
  Serious: Yes (Other)
  Sender: FDA-Public Use
  Company Number: SE-NOVOPROD-285585

PATIENT
  Age: 67 Year
  Sex: Female

DRUGS (3)
  1. VAGIFEM [Suspect]
     Indication: DRUG USE FOR UNKNOWN INDICATION
     Dates: start: 20080201
  2. ACETAMINOPHEN [Concomitant]
     Indication: ARTHRITIS
  3. ARTROX [Concomitant]
     Indication: ARTHRITIS

REACTIONS (1)
  - HYPERTENSION [None]
